FAERS Safety Report 6844681-1 (Version None)
Quarter: 2010Q2

REPORT INFORMATION
  Report Type: 
  Country: None (occurrence: None)
  Receive Date: 20100629
  Receipt Date: 20100406
  Transmission Date: 20101027
  Serious: No
  Sender: FDA-Public Use
  Company Number: US-WYE-H14464110

PATIENT
  Age: 49 Year
  Sex: Female
  Weight: 81.72 kg

DRUGS (3)
  1. PRISTIQ [Suspect]
     Indication: DEPRESSION
     Dosage: 50 MG 1X PER 1 DAY, ORAL
     Route: 048
     Dates: start: 20100301
  2. PRISTIQ [Suspect]
     Indication: PAIN
     Dosage: 50 MG 1X PER 1 DAY, ORAL
     Route: 048
     Dates: start: 20100301
  3. TOPAMAX [Concomitant]

REACTIONS (8)
  - DRY EYE [None]
  - EYE IRRITATION [None]
  - EYE PRURITUS [None]
  - FEELING HOT [None]
  - HEADACHE [None]
  - LIP SWELLING [None]
  - PRURITUS [None]
  - SWELLING FACE [None]
